FAERS Safety Report 5614446-7 (Version None)
Quarter: 2008Q1

REPORT INFORMATION
  Report Type: 
  Country: None (occurrence: None)
  Receive Date: 20080130
  Receipt Date: 20080122
  Transmission Date: 20080703
  Serious: Yes (Other)
  Sender: FDA-Public Use
  Company Number: 2008AP000233

PATIENT
  Age: 30 Year
  Sex: Female

DRUGS (8)
  1. PAROXETINE HCL [Suspect]
     Dosage: 20 MG UNK QD; 20 MG UNK BID ; 30 MG UNK ; 45 MG UNK
     Dates: start: 19990225
  2. PAROXETINE HCL [Suspect]
     Dosage: 20 MG UNK QD; 20 MG UNK BID ; 30 MG UNK ; 45 MG UNK
     Dates: start: 20020901
  3. PAROXETINE HCL [Suspect]
     Dosage: 20 MG UNK QD; 20 MG UNK BID ; 30 MG UNK ; 45 MG UNK
     Dates: start: 20040101
  4. CITALOPRAM HYDROBROMIDE [Concomitant]
  5. DOTHIEPIN HYDROCHLORIDE [Concomitant]
  6. FLUOXETINE [Concomitant]
  7. MIANSERIN (MIANSERIN) [Concomitant]
  8. ZOLPIDEM [Concomitant]

REACTIONS (12)
  - ABNORMAL DREAMS [None]
  - ANGER [None]
  - DEPRESSION [None]
  - HYPERHIDROSIS [None]
  - INTENTIONAL SELF-INJURY [None]
  - MALAISE [None]
  - MOOD SWINGS [None]
  - PANIC ATTACK [None]
  - PARAESTHESIA [None]
  - SUICIDAL IDEATION [None]
  - TREMOR [None]
  - WEIGHT INCREASED [None]
